FAERS Safety Report 9691864 (Version 1)
Quarter: 2013Q4

REPORT INFORMATION
  Report Type: Report from Study
  Country: JP (occurrence: JP)
  Receive Date: 20131117
  Receipt Date: 20131117
  Transmission Date: 20140711
  Serious: Yes (Hospitalization)
  Sender: FDA-Public Use
  Company Number: JP-AMGEN-JPNCT2013080046

PATIENT
  Age: 74 Year
  Sex: Male

DRUGS (16)
  1. DARBEPOETIN ALFA [Suspect]
     Indication: NEPHROGENIC ANAEMIA
     Dosage: 40 MUG, QD
     Route: 058
     Dates: start: 20111205, end: 20111205
  2. DARBEPOETIN ALFA [Suspect]
     Dosage: 30 MUG, QD
     Route: 058
     Dates: start: 20120111, end: 20120111
  3. DARBEPOETIN ALFA [Suspect]
     Dosage: 20 MUG, QD
     Route: 058
     Dates: start: 20120123, end: 20120123
  4. TAGAMET                            /00397401/ [Concomitant]
  5. SELBEX [Concomitant]
  6. GLORIAMIN                          /00518301/ [Concomitant]
  7. BLOPRESS [Concomitant]
  8. CALBLOCK [Concomitant]
  9. CARDENALIN [Concomitant]
  10. KALIAID [Concomitant]
  11. SENNARIDE [Concomitant]
  12. WARFARIN [Concomitant]
  13. MEXITIL [Concomitant]
  14. OPALMON [Concomitant]
  15. IDOMETHINE [Concomitant]
  16. KREMEZIN [Concomitant]

REACTIONS (3)
  - Blood pressure increased [Recovering/Resolving]
  - Pneumothorax [Recovering/Resolving]
  - Pneumonia [Recovering/Resolving]
